FAERS Safety Report 8805032 (Version 2)
Quarter: 2012Q4

REPORT INFORMATION
  Report Type: 
  Country: US (occurrence: US)
  Receive Date: 20120924
  Receipt Date: 20121008
  Transmission Date: 20130627
  Serious: Yes (Other)
  Sender: FDA-Public Use
  Company Number: CHPA2012US019813

PATIENT
  Sex: Female

DRUGS (1)
  1. MYOFLEX ANALGESIC CREME [Suspect]
     Indication: FIBROMYALGIA
     Dosage: Unk, BID
     Route: 061
     Dates: start: 1970

REACTIONS (5)
  - Hepatitis C [Recovered/Resolved]
  - Hepatic cirrhosis [Not Recovered/Not Resolved]
  - Osteoarthritis [Not Recovered/Not Resolved]
  - Arthralgia [Unknown]
  - Off label use [Unknown]
